FAERS Safety Report 18242519 (Version 1)
Quarter: 2020Q3

REPORT INFORMATION
  Report Type: Spontaneous
  Country: US (occurrence: US)
  Receive Date: 20200908
  Receipt Date: 20200908
  Transmission Date: 20201103
  Serious: Yes (Other)
  Sender: FDA-Public Use
  Company Number: US-SK LIFE SCIENCE, INC-SKPVG-2020-000048

PATIENT

DRUGS (15)
  1. CLONAZEPAM. [Concomitant]
     Active Substance: CLONAZEPAM
     Indication: DYSMENORRHOEA
     Dosage: 1 MILLIGRAM,FIVE DAYS BEFORE AND AFTER THE PERIOD STARTS, TAKE 1 TABLET AT BED TIME
     Route: 048
     Dates: start: 20180904
  2. NORETHINDRONE                      /00044901/ [Suspect]
     Active Substance: NORETHINDRONE
     Indication: PRODUCT USED FOR UNKNOWN INDICATION
     Dosage: 0.35 MILLIGRAM, TABLET
     Route: 048
     Dates: start: 20200507
  3. ZONISAMIDE. [Concomitant]
     Active Substance: ZONISAMIDE
     Indication: PRODUCT USED FOR UNKNOWN INDICATION
     Dosage: 100 MILLIGRAM, 3 CAPSULES AT BED TIME
     Route: 048
     Dates: start: 20181120
  4. VIMPAT [Concomitant]
     Active Substance: LACOSAMIDE
     Indication: PRODUCT USED FOR UNKNOWN INDICATION
     Dosage: 150 MILLIGRAM, 1 TABLET BID
     Route: 048
     Dates: start: 20171012
  5. FOLIC ACID. [Concomitant]
     Active Substance: FOLIC ACID
     Indication: PRODUCT USED FOR UNKNOWN INDICATION
     Dosage: 1 MILLIGRAM, TABLET
     Route: 048
     Dates: start: 20180102
  6. LORATADINE. [Concomitant]
     Active Substance: LORATADINE
     Indication: PRODUCT USED FOR UNKNOWN INDICATION
     Dosage: 10 MILLIGRAM, QD, 1 TABLET
     Route: 048
     Dates: start: 20200601
  7. XCOPRI [Suspect]
     Active Substance: CENOBAMATE
     Dosage: 25 MILLIGRAM, QD,  AS PER DIRECTIONS EN STARTER PACK
     Route: 048
     Dates: start: 202007, end: 202007
  8. AMLODIPINE BESYLATE. [Concomitant]
     Active Substance: AMLODIPINE BESYLATE
     Indication: PRODUCT USED FOR UNKNOWN INDICATION
     Dosage: 5 MILLIGRAM, TABLET
     Route: 048
     Dates: start: 20170926
  9. XCOPRI [Suspect]
     Active Substance: CENOBAMATE
     Indication: SEIZURE
     Dosage: 12.5 MILLIGRAM, QD, IN THE EVENING
     Route: 048
     Dates: start: 20200623
  10. LAMOTRIGINE. [Concomitant]
     Active Substance: LAMOTRIGINE
     Indication: PRODUCT USED FOR UNKNOWN INDICATION
     Dosage: 100 MILLIGRAM PLUS 200 MG TABLET IN THE EVENING FOR A TOTAL OF 300 MG AT BEDTIME
     Route: 048
     Dates: start: 20180605
  11. GABAPENTIN. [Concomitant]
     Active Substance: GABAPENTIN
     Indication: ANXIETY
     Dosage: 300 MILLIGRAM
     Route: 048
     Dates: start: 20200229
  12. VENTOLIN HFA [Concomitant]
     Active Substance: ALBUTEROL SULFATE
     Indication: PRODUCT USED FOR UNKNOWN INDICATION
     Dosage: (90 BASE) MCG/ACT INHALATION AEROSOL SOLUTION INHALE ONE TO TWO PUFFS EVERY SIX HOURS
     Dates: start: 20191017
  13. ZONISAMIDE. [Concomitant]
     Active Substance: ZONISAMIDE
     Dosage: 100 MILLIGRAM, 1 CAPSULE BID
     Route: 048
     Dates: start: 20200714
  14. LAMOTRIGINE. [Concomitant]
     Active Substance: LAMOTRIGINE
     Dosage: 200 MILLIGRAM, BID
     Route: 048
     Dates: start: 20171012
  15. CITALOPRAM HYDROBROMIDE. [Concomitant]
     Active Substance: CITALOPRAM HYDROBROMIDE
     Indication: PRODUCT USED FOR UNKNOWN INDICATION
     Dosage: 10 MILLIGRAM, 1 TABLET, QD
     Route: 048
     Dates: start: 20191017

REACTIONS (9)
  - Haemorrhage [Unknown]
  - Sedation [Unknown]
  - Gait disturbance [Unknown]
  - Vision blurred [Recovered/Resolved]
  - Seizure [Unknown]
  - Muscle spasms [Unknown]
  - Malaise [Unknown]
  - Dizziness [Unknown]
  - Dizziness [Recovered/Resolved]

NARRATIVE: CASE EVENT DATE: 2020
